FAERS Safety Report 9439330 (Version 15)
Quarter: 2018Q4

REPORT INFORMATION
  Report Type: Report from Study
  Country: CH (occurrence: CH)
  Receive Date: 20130804
  Receipt Date: 20181211
  Transmission Date: 20190205
  Serious: Yes (Other)
  Sender: FDA-Public Use
  Company Number: PHHY2013CH081067

PATIENT
  Age: 41 Year
  Sex: Male
  Weight: 70.4 kg

DRUGS (2)
  1. GILENYA [Suspect]
     Active Substance: FINGOLIMOD HYDROCHLORIDE
     Indication: MULTIPLE SCLEROSIS
     Dosage: 0.5 MG, QD
     Route: 048
     Dates: start: 20121017
  2. BETAFERON [Suspect]
     Active Substance: INTERFERON BETA-1B
     Indication: PRODUCT USED FOR UNKNOWN INDICATION
     Route: 065

REACTIONS (9)
  - Eyelid infection [Unknown]
  - Microangiopathy [Recovered/Resolved]
  - Retinal haemorrhage [Recovered/Resolved]
  - Retinopathy [Recovered/Resolved]
  - Blood alkaline phosphatase decreased [Unknown]
  - Blood bilirubin increased [Unknown]
  - White blood cell count decreased [Recovering/Resolving]
  - Lymphocyte percentage decreased [Unknown]
  - Gamma-glutamyltransferase increased [Unknown]

NARRATIVE: CASE EVENT DATE: 20121217
